FAERS Safety Report 16720626 (Version 1)
Quarter: 2019Q3

REPORT INFORMATION
  Report Type: Spontaneous
  Country: US (occurrence: US)
  Receive Date: 20190702
  Receipt Date: 20190702
  Transmission Date: 20191005
  Serious: No
  Sender: FDA-Public Use
  Company Number: None

PATIENT
  Age: 54 Year
  Sex: Female
  Weight: 60.78 kg

DRUGS (7)
  1. AMOLOPINE [Concomitant]
  2. SPIRATONE [Concomitant]
  3. IRON [Concomitant]
     Active Substance: IRON
  4. MIRTAZEPHRINE [Concomitant]
  5. VALTREX [Concomitant]
     Active Substance: VALACYCLOVIR HYDROCHLORIDE
  6. GABAPENDTIN [Concomitant]
  7. ATORVASTIN 20MG COMMONLY KNOWN AS LIPITOR [Suspect]
     Active Substance: ATORVASTATIN
     Indication: BLOOD CHOLESTEROL ABNORMAL
     Dosage: ?          QUANTITY:1 DF DOSAGE FORM;?
     Dates: start: 20190611, end: 20190613

REACTIONS (4)
  - Lip swelling [None]
  - Swollen tongue [None]
  - Pharyngeal swelling [None]
  - Aphthous ulcer [None]

NARRATIVE: CASE EVENT DATE: 20190611
